FAERS Safety Report 9322857 (Version 1)
Quarter: 2013Q2

REPORT INFORMATION
  Report Type: Spontaneous
  Country: US (occurrence: US)
  Receive Date: 20130601
  Receipt Date: 20130601
  Transmission Date: 20140414
  Serious: No
  Sender: FDA-Public Use
  Company Number: US-TEVA-408645USA

PATIENT
  Age: 30 Year
  Sex: Male

DRUGS (5)
  1. NUVIGIL [Suspect]
  2. WELLBUTRIN [Concomitant]
  3. KLONOPIN [Concomitant]
  4. LORITAB [Concomitant]
  5. CYCLOBENZAPRINE [Concomitant]

REACTIONS (3)
  - Tearfulness [Unknown]
  - Mood altered [Unknown]
  - Depression [Unknown]
